FAERS Safety Report 22250916 (Version 1)
Quarter: 2023Q2

REPORT INFORMATION
  Report Type: Spontaneous
  Country: US (occurrence: US)
  Receive Date: 20230425
  Receipt Date: 20230425
  Transmission Date: 20230722
  Serious: No
  Sender: FDA-Public Use
  Company Number: US-BAYER-2023A056411

PATIENT

DRUGS (2)
  1. MIRALAX [Suspect]
     Active Substance: POLYETHYLENE GLYCOL 3350
     Indication: Colonoscopy
     Dosage: ONCE DAILY DOSE
     Route: 048
  2. PLANTAGO MAJOR LEAF [Concomitant]
     Active Substance: PLANTAGO MAJOR LEAF
     Route: 065

REACTIONS (2)
  - Off label use [Unknown]
  - Drug ineffective [Unknown]
